FAERS Safety Report 15246582 (Version 2)
Quarter: 2018Q3

REPORT INFORMATION
  Report Type: Spontaneous
  Country: AT (occurrence: AT)
  Receive Date: 20180806
  Receipt Date: 20180816
  Transmission Date: 20181010
  Serious: Yes (Hospitalization)
  Sender: FDA-Public Use
  Company Number: AT-B.I. PHARMACEUTICALS,INC./RIDGEFIELD-2018-12-002641

PATIENT
  Age: 39 Year
  Sex: Male
  Weight: 95 kg

DRUGS (21)
  1. NORADRENALIN [Concomitant]
     Active Substance: NOREPINEPHRINE\NOREPINEPHRINE BITARTRATE
     Indication: VASCULAR GRAFT
     Route: 065
     Dates: start: 201807
  2. BRILIQUE [Concomitant]
     Active Substance: TICAGRELOR
     Indication: VASCULAR GRAFT
     Route: 065
     Dates: start: 20180705
  3. PROTAMIN [Concomitant]
     Active Substance: PROTAMINE
     Indication: VASCULAR GRAFT
     Route: 065
     Dates: start: 201807
  4. CEFUROXIM [Concomitant]
     Active Substance: CEFUROXIME
     Indication: VASCULAR GRAFT
     Route: 065
     Dates: start: 201807
  5. PIRITRAMIDE [Concomitant]
     Active Substance: PIRITRAMIDE
     Indication: VASCULAR GRAFT
     Route: 065
     Dates: start: 201807
  6. TRANEXAM ACID [Concomitant]
     Indication: VASCULAR GRAFT
     Route: 065
     Dates: start: 201807
  7. NEOSYNEPHRINE [Concomitant]
     Active Substance: PHENYLEPHRINE HYDROCHLORIDE
     Indication: VASCULAR GRAFT
     Route: 065
     Dates: start: 201807
  8. CRESTOR [Concomitant]
     Active Substance: ROSUVASTATIN CALCIUM
     Indication: PRODUCT USED FOR UNKNOWN INDICATION
     Route: 065
  9. SEVOFLURANE. [Concomitant]
     Active Substance: SEVOFLURANE
     Indication: VASCULAR GRAFT
     Route: 065
     Dates: start: 201807
  10. EUCREAS [Concomitant]
     Active Substance: METFORMIN HYDROCHLORIDE\VILDAGLIPTIN
     Indication: PRODUCT USED FOR UNKNOWN INDICATION
     Dosage: STRENGTH: 50MG/1000MG
     Route: 065
     Dates: end: 20180705
  11. THROMBO ASS [Concomitant]
     Active Substance: ASPIRIN
     Indication: VASCULAR GRAFT
     Route: 065
     Dates: start: 20180705
  12. PROPOFOL. [Concomitant]
     Active Substance: PROPOFOL
     Indication: VASCULAR GRAFT
     Route: 065
     Dates: start: 201807
  13. CARVEDILOL. [Concomitant]
     Active Substance: CARVEDILOL
     Indication: PRODUCT USED FOR UNKNOWN INDICATION
     Route: 065
  14. JARDIANCE [Suspect]
     Active Substance: EMPAGLIFLOZIN
     Indication: DIABETES MELLITUS
     Route: 048
  15. MIDAZOLAM [Concomitant]
     Active Substance: MIDAZOLAM HYDROCHLORIDE
     Indication: VASCULAR GRAFT
     Route: 065
     Dates: start: 201807
  16. HEPARIN [Concomitant]
     Active Substance: HEPARIN SODIUM
     Indication: VASCULAR GRAFT
     Route: 065
     Dates: start: 201807
  17. LACTATED RINGERS SOLUTION [Concomitant]
     Active Substance: CALCIUM CHLORIDE\POTASSIUM CHLORIDE\SODIUM CHLORIDE\SODIUM LACTATE
     Indication: VASCULAR GRAFT
     Route: 065
     Dates: start: 201807
  18. SUFENTANIL [Concomitant]
     Active Substance: SUFENTANIL
     Indication: VASCULAR GRAFT
     Route: 065
     Dates: start: 201807
  19. REMIFENTANIL [Concomitant]
     Active Substance: REMIFENTANIL
     Indication: VASCULAR GRAFT
     Route: 065
     Dates: start: 201807
  20. PARACETAMOL [Concomitant]
     Active Substance: ACETAMINOPHEN
     Indication: VASCULAR GRAFT
     Route: 065
     Dates: start: 201807
  21. NATRIUMBICARBONATE [Concomitant]
     Indication: VASCULAR GRAFT
     Dates: start: 201807

REACTIONS (1)
  - Euglycaemic diabetic ketoacidosis [Recovered/Resolved]

NARRATIVE: CASE EVENT DATE: 20180711
